FAERS Safety Report 7218608-7 (Version None)
Quarter: 2011Q1

REPORT INFORMATION
  Report Type: 
  Country: None (occurrence: None)
  Receive Date: 20110110
  Receipt Date: 20101231
  Transmission Date: 20110831
  Serious: Yes (Death)
  Sender: FDA-Public Use
  Company Number: US-PFIZER INC-2011000432

PATIENT
  Age: 30 Year
  Sex: Female

DRUGS (6)
  1. GABAPENTIN [Suspect]
     Route: 048
  2. DULOXETINE [Suspect]
     Route: 048
  3. HYDROCODONE [Suspect]
     Route: 048
  4. METHADONE [Suspect]
     Route: 048
  5. AMITRIPTYLINE [Suspect]
     Route: 048
  6. OXYCODONE [Suspect]
     Route: 048

REACTIONS (3)
  - CARDIAC ARREST [None]
  - RESPIRATORY ARREST [None]
  - DEATH [None]
